FAERS Safety Report 10135948 (Version 1)
Quarter: 2014Q2

REPORT INFORMATION
  Report Type: Spontaneous
  Country: BR (occurrence: BR)
  Receive Date: 20140428
  Receipt Date: 20140428
  Transmission Date: 20141212
  Serious: Yes (Other)
  Sender: FDA-Public Use
  Company Number: BR-ROCHE-1391590

PATIENT
  Age: 30 Year
  Sex: Female

DRUGS (5)
  1. HERCEPTIN [Suspect]
     Indication: BREAST CANCER
     Route: 065
  2. HERCEPTIN [Suspect]
     Indication: METASTASES TO BONE
  3. HERCEPTIN [Suspect]
     Indication: METASTASES TO LIVER
  4. PACLITAXEL [Suspect]
     Indication: BREAST CANCER
     Route: 065
  5. DOCETAXEL [Suspect]
     Indication: BREAST CANCER
     Route: 065

REACTIONS (1)
  - Disease progression [Not Recovered/Not Resolved]
